FAERS Safety Report 8135528-4 (Version None)
Quarter: 2012Q1

REPORT INFORMATION
  Report Type: 
  Country: None (occurrence: None)
  Receive Date: 20120214
  Receipt Date: 20120206
  Transmission Date: 20120608
  Serious: Yes (Death)
  Sender: FDA-Public Use
  Company Number: IE-TEVA-322105ISR

PATIENT
  Sex: Male
  Weight: 82 kg

DRUGS (3)
  1. PREDNISOLONE [Suspect]
     Indication: PROSTATE CANCER METASTATIC
     Dosage: 10 MILLIGRAM;
     Route: 048
  2. VOLTAREN [Suspect]
     Indication: ANALGESIC THERAPY
     Dosage: 75 MILLIGRAM;
     Route: 048
  3. ABIRATERONE ACETATE [Suspect]
     Indication: PROSTATE CANCER METASTATIC
     Dosage: 1000 MILLIGRAM;
     Route: 048
     Dates: start: 20111010, end: 20111219

REACTIONS (1)
  - HEPATIC FUNCTION ABNORMAL [None]
